FAERS Safety Report 17064185 (Version 1)
Quarter: 2019Q4

REPORT INFORMATION
  Report Type: Spontaneous
  Country: DE (occurrence: DE)
  Receive Date: 20191122
  Receipt Date: 20191122
  Transmission Date: 20200122
  Serious: Yes (Death, Hospitalization)
  Sender: FDA-Public Use
  Company Number: DE-MYLANLABS-2019M1112678

PATIENT
  Age: 69 Year
  Sex: Female

DRUGS (6)
  1. HYDROCORTISONE. [Suspect]
     Active Substance: HYDROCORTISONE
     Indication: IMMUNOSUPPRESSANT DRUG THERAPY
     Route: 042
  2. TACROLIMUS. [Suspect]
     Active Substance: TACROLIMUS
     Indication: IMMUNOSUPPRESSANT DRUG THERAPY
     Dosage: INITIAL DOSAGE NOT STATED; HOWEVER..
     Route: 048
  3. MYCOPHENOLATE MOFETIL. [Suspect]
     Active Substance: MYCOPHENOLATE MOFETIL
     Indication: IMMUNOSUPPRESSANT DRUG THERAPY
     Dosage: INITIAL DOSAGE NOT STATED; HOWEVER, SHE...
     Route: 048
  4. RITUXIMAB. [Suspect]
     Active Substance: RITUXIMAB
     Indication: IMMUNOSUPPRESSANT DRUG THERAPY
     Dosage: TWO APPLICATIONS OF RITUXIMAB 2 X 1000MG..
     Route: 065
  5. CYCLOPHOSPHAMIDE. [Suspect]
     Active Substance: CYCLOPHOSPHAMIDE
     Indication: IMMUNOSUPPRESSANT DRUG THERAPY
     Dosage: SHE WAS LATER READMITTED..
     Route: 065
  6. METHYLPREDNISOLONE. [Suspect]
     Active Substance: METHYLPREDNISOLONE
     Indication: IMMUNOSUPPRESSANT DRUG THERAPY
     Dosage: 1 G DAILY FOR 5 DAYS, FOLLOWED BY SECOND..
     Route: 042

REACTIONS (9)
  - Central nervous system viral infection [Fatal]
  - Encephalitis autoimmune [Fatal]
  - Altered state of consciousness [Recovered/Resolved]
  - Apallic syndrome [Recovered/Resolved]
  - Sepsis [Fatal]
  - Epilepsy [Not Recovered/Not Resolved]
  - Epstein-Barr virus infection [Fatal]
  - Gait inability [Not Recovered/Not Resolved]
  - Cachexia [Not Recovered/Not Resolved]
